FAERS Safety Report 5806010-1 (Version None)
Quarter: 2008Q3

REPORT INFORMATION
  Report Type: 
  Country: None (occurrence: None)
  Receive Date: 20080710
  Receipt Date: 20080704
  Transmission Date: 20090109
  Serious: Yes (Life-Threatening, Hospitalization)
  Sender: FDA-Public Use
  Company Number: B0528484A

PATIENT
  Age: 51 Year
  Sex: Male

DRUGS (2)
  1. AUGMENTIN '125' [Suspect]
     Indication: RESPIRATORY TRACT INFECTION
     Dosage: 1500MG PER DAY
     Route: 048
     Dates: start: 20080317, end: 20080322
  2. IBUPROFEN [Concomitant]
     Indication: INFLAMMATION
     Dosage: 1800MG PER DAY
     Route: 048
     Dates: start: 20080317, end: 20080322

REACTIONS (3)
  - GAMMA-GLUTAMYLTRANSFERASE INCREASED [None]
  - HEPATITIS CHOLESTATIC [None]
  - TRANSAMINASES INCREASED [None]
